FAERS Safety Report 16487739 (Version 1)
Quarter: 2019Q2

REPORT INFORMATION
  Report Type: Spontaneous
  Country: IT (occurrence: IT)
  Receive Date: 20190627
  Receipt Date: 20190627
  Transmission Date: 20190711
  Serious: Yes (Other)
  Sender: FDA-Public Use
  Company Number: IT-SA-2019SA169826

PATIENT
  Age: 78 Year
  Sex: Female

DRUGS (5)
  1. OXALIPLATIN. [Suspect]
     Active Substance: OXALIPLATIN
     Indication: COLON CANCER
     Dosage: 120 MG, QCY
     Route: 042
  2. OXALIPLATIN. [Suspect]
     Active Substance: OXALIPLATIN
     Dosage: 120 MG, QCY
     Route: 042
     Dates: start: 20190527, end: 20190527
  3. FLUOROURACIL. [Suspect]
     Active Substance: FLUOROURACIL
     Indication: COLON CANCER
     Dosage: 3800 MG, QCY
     Route: 042
  4. FLUOROURACIL. [Suspect]
     Active Substance: FLUOROURACIL
     Dosage: 3800 MG, QCY
     Route: 042
     Dates: start: 20190527, end: 20190527
  5. LEVOLEUCOVORIN [LEVOFOLINIC ACID] [Concomitant]
     Indication: COLON CANCER
     Dosage: 600 MG

REACTIONS (1)
  - Ejection fraction decreased [Unknown]

NARRATIVE: CASE EVENT DATE: 20190610
